FAERS Safety Report 8281001-2 (Version None)
Quarter: 2012Q2

REPORT INFORMATION
  Report Type: 
  Country: None (occurrence: None)
  Receive Date: 20120412
  Receipt Date: 20120409
  Transmission Date: 20120825
  Serious: Yes (Other)
  Sender: FDA-Public Use
  Company Number: US-ABBOTT-11P-163-0844680-00

PATIENT
  Sex: Male

DRUGS (9)
  1. MULTAQ [Concomitant]
     Indication: HYPERTENSION
     Route: 048
     Dates: start: 20110101
  2. METOPROLOL TARTRATE [Concomitant]
     Indication: ARRHYTHMIA
     Route: 048
     Dates: start: 20110101
  3. FLOVENT [Concomitant]
     Indication: ASTHMA
     Dosage: TWICE A DAY, DISK
     Dates: start: 20100801
  4. TESTOSTERONE ENANTATE [Concomitant]
     Indication: BLOOD TESTOSTERONE DECREASED
  5. HUMIRA [Suspect]
     Indication: PSORIATIC ARTHROPATHY
     Dates: start: 20101213, end: 20110701
  6. FLOMAX [Concomitant]
     Indication: PROSTATOMEGALY
  7. MULTI-VITAMIN [Concomitant]
     Indication: PRODUCT USED FOR UNKNOWN INDICATION
  8. HUMIRA [Suspect]
  9. PRADAXA [Concomitant]
     Indication: THROMBOSIS PROPHYLAXIS
     Dates: start: 20110501

REACTIONS (8)
  - BASAL CELL CARCINOMA [None]
  - BLOOD TESTOSTERONE DECREASED [None]
  - PYREXIA [None]
  - PAIN [None]
  - PROCEDURAL PAIN [None]
  - MUSCULOSKELETAL PAIN [None]
  - FATIGUE [None]
  - DYSPLASTIC NAEVUS [None]
